FAERS Safety Report 7511193-1 (Version None)
Quarter: 2011Q2

REPORT INFORMATION
  Report Type: 
  Country: None (occurrence: None)
  Receive Date: 20110531
  Receipt Date: 20110516
  Transmission Date: 20111010
  Serious: Yes (Hospitalization, Other)
  Sender: FDA-Public Use
  Company Number: PHHY2010NZ86420

PATIENT
  Sex: Male

DRUGS (5)
  1. CLOZAPINE [Suspect]
     Indication: SCHIZOPHRENIA
     Dosage: 650 MG
     Route: 048
     Dates: start: 20080911, end: 20101215
  2. OLANZAPINE [Concomitant]
     Dates: start: 20110101
  3. AMISULPRIDE [Concomitant]
     Indication: PSYCHOTIC DISORDER
     Dosage: 400 MG
     Route: 048
     Dates: end: 20101217
  4. SIMVASTATIN [Concomitant]
     Indication: BLOOD CHOLESTEROL INCREASED
     Dosage: 20 MG
     Route: 048
     Dates: end: 20101214
  5. CLOZAPINE [Suspect]
     Indication: PSYCHOTIC DISORDER
     Dates: start: 20080911

REACTIONS (7)
  - ASTHENIA [None]
  - INFLUENZA LIKE ILLNESS [None]
  - FATIGUE [None]
  - MYALGIA [None]
  - MYOSITIS [None]
  - MYOGLOBINURIA [None]
  - BLOOD CREATINE PHOSPHOKINASE INCREASED [None]
